FAERS Safety Report 8455286-3 (Version None)
Quarter: 2012Q2

REPORT INFORMATION
  Report Type: 
  Country: None (occurrence: None)
  Receive Date: 20120614
  Receipt Date: 20120607
  Transmission Date: 20120825
  Serious: Yes (Other)
  Sender: FDA-Public Use
  Company Number: 2012SP020181

PATIENT
  Age: 48 Year
  Sex: Female

DRUGS (3)
  1. PROPOFOL [Suspect]
     Indication: GENERAL ANAESTHESIA
     Dosage: 1 DF; ONCE; IV
     Route: 042
     Dates: start: 20120208, end: 20120208
  2. ROCURONIUM BROMIDE [Suspect]
     Indication: GENERAL ANAESTHESIA
     Dosage: 1 DF; ONCE; IV
     Route: 042
     Dates: start: 20120208, end: 20120208
  3. ULTIVA [Suspect]
     Indication: GENERAL ANAESTHESIA
     Dosage: 1 DF; ONCE; IV
     Route: 042
     Dates: start: 20120208, end: 20120208

REACTIONS (3)
  - RASH [None]
  - TRYPTASE INCREASED [None]
  - URTICARIA [None]
